FAERS Safety Report 13472152 (Version 1)
Quarter: 2017Q2

REPORT INFORMATION
  Report Type: Spontaneous
  Country: US (occurrence: US)
  Receive Date: 20170424
  Receipt Date: 20170424
  Transmission Date: 20170830
  Serious: Yes (Other)
  Sender: FDA-Public Use
  Company Number: US-TEVA-762032USA

PATIENT
  Age: 48 Year
  Sex: Female

DRUGS (3)
  1. METHOTREXATE. [Suspect]
     Active Substance: METHOTREXATE
     Indication: RHEUMATOID ARTHRITIS
     Route: 065
  2. POSACONAZOLE [Suspect]
     Active Substance: POSACONAZOLE
     Indication: ASPERGILLUS INFECTION
     Route: 048
  3. VORICONAZOLE. [Suspect]
     Active Substance: VORICONAZOLE
     Indication: ASPERGILLUS INFECTION
     Dosage: 200MG
     Route: 065

REACTIONS (6)
  - Bronchopulmonary aspergillosis allergic [Recovered/Resolved]
  - Asthma [Not Recovered/Not Resolved]
  - Haematuria [Unknown]
  - Middle lobe syndrome [Recovered/Resolved]
  - Rash [Recovered/Resolved]
  - Aspergillus infection [Recovered/Resolved]
